FAERS Safety Report 18555496 (Version 1)
Quarter: 2020Q4

REPORT INFORMATION
  Report Type: Spontaneous
  Country: US (occurrence: US)
  Receive Date: 20201127
  Receipt Date: 20201127
  Transmission Date: 20210114
  Serious: No
  Sender: FDA-Public Use
  Company Number: US-TEVA-2020-US-1853193

PATIENT
  Sex: Female

DRUGS (5)
  1. COPAXONE [Suspect]
     Active Substance: GLATIRAMER ACETATE
     Indication: MULTIPLE SCLEROSIS
     Route: 058
     Dates: start: 20171020
  2. CYANOCOBALAM [Concomitant]
     Active Substance: CYANOCOBALAMIN
     Dosage: INJ 1000 MCG
     Route: 065
  3. ESTRADIOL. [Concomitant]
     Active Substance: ESTRADIOL
     Dosage: 0.05MG
     Route: 065
  4. VITAMIN D3 [Concomitant]
     Active Substance: CHOLECALCIFEROL
     Dosage: 10000 UNIT
     Route: 065
  5. MODAFINIL. [Concomitant]
     Active Substance: MODAFINIL
     Dosage: 100 MG
     Route: 065

REACTIONS (1)
  - Injection site reaction [Not Recovered/Not Resolved]
